FAERS Safety Report 5762186-6 (Version None)
Quarter: 2008Q2

REPORT INFORMATION
  Report Type: 
  Country: None (occurrence: None)
  Receive Date: 20080609
  Receipt Date: 20080522
  Transmission Date: 20081010
  Serious: Yes (Death, Hospitalization)
  Sender: FDA-Public Use
  Company Number: GB-RANBAXY-2008RR-15625

PATIENT

DRUGS (1)
  1. ACETAMINOPHEN [Suspect]
     Indication: POISONING DELIBERATE
     Dosage: UNK
     Route: 048

REACTIONS (2)
  - DEATH [None]
  - POISONING DELIBERATE [None]
